FAERS Safety Report 24464795 (Version 1)
Quarter: 2024Q4

REPORT INFORMATION
  Report Type: Spontaneous
  Country: US (occurrence: US)
  Receive Date: 20241018
  Receipt Date: 20241018
  Transmission Date: 20250115
  Serious: No
  Sender: ROCHE
  Company Number: US-ROCHE-3503667

PATIENT
  Age: 67 Year
  Sex: Female

DRUGS (12)
  1. XOLAIR [Suspect]
     Active Substance: OMALIZUMAB
     Indication: Asthma
     Dosage: (STRENGTH + DOSE: 150 MG/ML)
     Route: 058
     Dates: start: 20200226
  2. ACYCLOVIR [Concomitant]
     Active Substance: ACYCLOVIR
  3. AZELASTINE [Concomitant]
     Active Substance: AZELASTINE
  4. COREG CR [Concomitant]
     Active Substance: CARVEDILOL PHOSPHATE
  5. DONNATAL [Concomitant]
     Active Substance: ATROPINE SULFATE\HYOSCYAMINE SULFATE\PHENOBARBITAL\SCOPOLAMINE HYDROBROMIDE
  6. HYALURONIC ACID [Concomitant]
     Active Substance: HYALURONIC ACID
  7. EPIPEN [Concomitant]
     Active Substance: EPINEPHRINE
  8. LEXISCAN [Concomitant]
     Active Substance: REGADENOSON
  9. MONTELUKAST [Concomitant]
     Active Substance: MONTELUKAST
  10. PRAVASTATIN [Concomitant]
     Active Substance: PRAVASTATIN
  11. PROAIR HFA [Concomitant]
     Active Substance: ALBUTEROL SULFATE
  12. SAXENDA [Concomitant]
     Active Substance: LIRAGLUTIDE

REACTIONS (2)
  - Drug ineffective [Unknown]
  - No adverse event [Unknown]

NARRATIVE: CASE EVENT DATE: 20240123
